FAERS Safety Report 5726861-1 (Version None)
Quarter: 2008Q2

REPORT INFORMATION
  Report Type: 
  Country: None (occurrence: None)
  Receive Date: 20080502
  Receipt Date: 20080421
  Transmission Date: 20081010
  Serious: Yes (Life-Threatening)
  Sender: FDA-Public Use
  Company Number: FR-PFIZER INC-2008035802

PATIENT
  Sex: Female

DRUGS (2)
  1. FOSPHENYTOIN SODIUM [Suspect]
     Indication: EPILEPSY
     Route: 042
     Dates: start: 20071205, end: 20071206
  2. RIVOTRIL [Suspect]
     Indication: EPILEPSY
     Route: 042
     Dates: start: 20071205, end: 20071205

REACTIONS (1)
  - HEPATITIS [None]
